FAERS Safety Report 14788533 (Version 1)
Quarter: 2018Q2

REPORT INFORMATION
  Report Type: Spontaneous
  Country: US (occurrence: US)
  Receive Date: 20180423
  Receipt Date: 20180423
  Transmission Date: 20180711
  Serious: No
  Sender: FDA-Public Use
  Company Number: US-ASTRAZENECA-2018SE46831

PATIENT
  Age: 35 Year
  Sex: Female
  Weight: 74.8 kg

DRUGS (6)
  1. SEROQUEL [Suspect]
     Active Substance: QUETIAPINE FUMARATE
     Route: 048
  2. XANAX XR [Suspect]
     Active Substance: ALPRAZOLAM
     Indication: ANXIETY
     Route: 048
  3. LITHIUM. [Suspect]
     Active Substance: LITHIUM
     Route: 065
  4. DESYREL [Suspect]
     Active Substance: TRAZODONE HYDROCHLORIDE
     Route: 065
  5. ADDERALL [Suspect]
     Active Substance: AMPHETAMINE ASPARTATE\AMPHETAMINE SULFATE\DEXTROAMPHETAMINE SACCHARATE\DEXTROAMPHETAMINE SULFATE
     Indication: ATTENTION DEFICIT/HYPERACTIVITY DISORDER
     Route: 048
  6. ZOLPIDEM [Suspect]
     Active Substance: ZOLPIDEM\ZOLPIDEM TARTRATE
     Dosage: 6.25 MG
     Route: 048

REACTIONS (10)
  - Lethargy [Unknown]
  - Anxiety [Unknown]
  - Weight decreased [Unknown]
  - Loss of personal independence in daily activities [Unknown]
  - Bipolar disorder [Unknown]
  - Insomnia [Recovering/Resolving]
  - Blood pressure increased [Unknown]
  - Decreased appetite [Unknown]
  - Depressed mood [Unknown]
  - Hallucinations, mixed [Unknown]
